FAERS Safety Report 9904342 (Version 2)
Quarter: 2014Q2

REPORT INFORMATION
  Report Type: Spontaneous
  Country: US (occurrence: US)
  Receive Date: 20140218
  Receipt Date: 20140620
  Transmission Date: 20141212
  Serious: No
  Sender: FDA-Public Use
  Company Number: US-PFIZER INC-2014045265

PATIENT
  Sex: Female

DRUGS (5)
  1. SERTRALINE HCL [Suspect]
     Indication: PANIC ATTACK
     Dosage: UNK
  2. SERTRALINE HCL [Suspect]
     Indication: ANXIETY
  3. ALPRAZOLAM [Suspect]
     Indication: PANIC ATTACK
     Dosage: UNK
  4. ALPRAZOLAM [Suspect]
     Indication: ANXIETY
  5. CLONAZEPAM [Suspect]
     Dosage: UNK

REACTIONS (2)
  - Drug ineffective [Unknown]
  - Product substitution issue [Unknown]
